FAERS Safety Report 6810275-7 (Version None)
Quarter: 2010Q2

REPORT INFORMATION
  Report Type: 
  Country: None (occurrence: None)
  Receive Date: 20100630
  Receipt Date: 20100622
  Transmission Date: 20101027
  Serious: Yes (Congenital Anomaly)
  Sender: FDA-Public Use
  Company Number: GXKR2010GB06986

PATIENT

DRUGS (3)
  1. CITALOPRAM HYDROBROMIDE [Suspect]
     Route: 064
  2. FOLIC ACID [Concomitant]
  3. MECLIZINE HYDROCHLORIDE [Concomitant]

REACTIONS (3)
  - CHOANAL ATRESIA [None]
  - DRUG EXPOSURE DURING PREGNANCY [None]
  - SURGERY [None]
